FAERS Safety Report 14427612 (Version 2)
Quarter: 2018Q1

REPORT INFORMATION
  Report Type: Report from Study
  Country: DE (occurrence: DE)
  Receive Date: 20180123
  Receipt Date: 20180206
  Transmission Date: 20180509
  Serious: Yes (Other)
  Sender: FDA-Public Use
  Company Number: DE-GILEAD-2018-0316179

PATIENT
  Age: 52 Year
  Sex: Female

DRUGS (7)
  1. IBRUTINIB [Concomitant]
     Active Substance: IBRUTINIB
  2. VENETOCLAX. [Concomitant]
     Active Substance: VENETOCLAX
  3. FLUDARABINE [Concomitant]
     Active Substance: FLUDARABINE PHOSPHATE
  4. BUSULFAN. [Concomitant]
     Active Substance: BUSULFAN
  5. IDELALISIB [Suspect]
     Active Substance: IDELALISIB
     Indication: CHRONIC LYMPHOCYTIC LEUKAEMIA
     Dosage: 150 MG, BID
     Route: 048
     Dates: start: 201701, end: 201705
  6. CYCLOSPORINE. [Concomitant]
     Active Substance: CYCLOSPORINE
  7. METHOTREXATE. [Concomitant]
     Active Substance: METHOTREXATE

REACTIONS (2)
  - Chronic graft versus host disease [Unknown]
  - Acute graft versus host disease [Unknown]

NARRATIVE: CASE EVENT DATE: 201706
